FAERS Safety Report 15200420 (Version 2)
Quarter: 2021Q3

REPORT INFORMATION
  Report Type: Report from Study
  Country: US (occurrence: US)
  Receive Date: 20180726
  Receipt Date: 20210922
  Transmission Date: 20211014
  Serious: No
  Sender: FDA-Public Use
  Company Number: US-SHIRE-US201828153

PATIENT
  Sex: Female

DRUGS (3)
  1. PARATHYROID HORMONE [Suspect]
     Active Substance: PARATHYROID HORMONE
     Indication: HYPOPARATHYROIDISM
     Dosage: 100 MICROGRAM, QD
     Route: 058
     Dates: start: 20151104
  2. PARATHYROID HORMONE [Suspect]
     Active Substance: PARATHYROID HORMONE
     Indication: HYPOPARATHYROIDISM
     Dosage: 100 MICROGRAM, QD
     Route: 058
     Dates: start: 20151104
  3. PARATHYROID HORMONE [Suspect]
     Active Substance: PARATHYROID HORMONE
     Indication: HYPOPARATHYROIDISM
     Dosage: 100 MICROGRAM, QD
     Route: 058
     Dates: start: 20151104

REACTIONS (3)
  - Product dose omission issue [Recovered/Resolved]
  - Blood calcium decreased [Not Recovered/Not Resolved]
  - Muscle spasms [Not Recovered/Not Resolved]
